FAERS Safety Report 16886627 (Version 2)
Quarter: 2019Q4

REPORT INFORMATION
  Report Type: Report from Study
  Country: IT (occurrence: IT)
  Receive Date: 20191004
  Receipt Date: 20191111
  Transmission Date: 20200122
  Serious: Yes (Hospitalization)
  Sender: FDA-Public Use
  Company Number: IT-MYLANLABS-2019M1092043

PATIENT
  Age: 85 Year
  Sex: Male

DRUGS (3)
  1. QUETIAPINE. [Suspect]
     Active Substance: QUETIAPINE
     Indication: PSYCHOTIC DISORDER
     Dosage: 25 MILLIGRAM, QD
     Route: 048
     Dates: start: 20190513, end: 20190514
  2. BISOPROLOLO TEVA [Concomitant]
     Active Substance: BISOPROLOL FUMARATE
     Dosage: UNK
  3. EBIXA [Concomitant]
     Active Substance: MEMANTINE HYDROCHLORIDE
     Dosage: UNK

REACTIONS (1)
  - Blood sodium increased [Recovering/Resolving]

NARRATIVE: CASE EVENT DATE: 20190515
